FAERS Safety Report 10251493 (Version 2)
Quarter: 2015Q3

REPORT INFORMATION
  Report Type: Spontaneous
  Country: ID (occurrence: ID)
  Receive Date: 20140623
  Receipt Date: 20150813
  Transmission Date: 20151125
  Serious: Yes (Death)
  Sender: FDA-Public Use
  Company Number: ID-ROCHE-1421795

PATIENT

DRUGS (2)
  1. MABTHERA [Suspect]
     Active Substance: RITUXIMAB
     Indication: NON-HODGKIN^S LYMPHOMA
     Dosage: 6 CYCLES AND THEN CONTINUED WITH 1 BEFORE DEATH
     Route: 065
  2. MABTHERA [Suspect]
     Active Substance: RITUXIMAB
     Indication: DIFFUSE LARGE B-CELL LYMPHOMA

REACTIONS (2)
  - Death [Fatal]
  - Disease recurrence [Unknown]

NARRATIVE: CASE EVENT DATE: 20140617
